FAERS Safety Report 18747498 (Version 1)
Quarter: 2021Q1

REPORT INFORMATION
  Report Type: Spontaneous
  Country: US (occurrence: US)
  Receive Date: 20210115
  Receipt Date: 20210115
  Transmission Date: 20210419
  Serious: Yes (Other)
  Sender: FDA-Public Use
  Company Number: US-BAYER-2021-020027

PATIENT
  Age: 43 Year
  Sex: Male

DRUGS (1)
  1. CALCIUM CARBONATE. [Suspect]
     Active Substance: CALCIUM CARBONATE
     Dosage: UNK

REACTIONS (5)
  - Sarcoidosis [None]
  - Extra dose administered [None]
  - Blood creatinine increased [None]
  - Blood calcium increased [None]
  - Nephrolithiasis [None]
